FAERS Safety Report 16264272 (Version 1)
Quarter: 2019Q2

REPORT INFORMATION
  Report Type: Report from Study
  Country: US (occurrence: US)
  Receive Date: 20190502
  Receipt Date: 20190502
  Transmission Date: 20190711
  Serious: Yes (Other)
  Sender: FDA-Public Use
  Company Number: US-ROCHE-2309708

PATIENT
  Sex: Female

DRUGS (1)
  1. OCREVUS [Suspect]
     Active Substance: OCRELIZUMAB
     Indication: PRODUCT USED FOR UNKNOWN INDICATION
     Dosage: 13/DEC/ (UNSPECIFIED YEAR) FIRST DOSE AND THEN FOLLOWED BY 9/JAN (UNSPECIFIED YEAR)
     Route: 065

REACTIONS (6)
  - Bronchitis [Unknown]
  - Pneumonia [Unknown]
  - Immunodeficiency [Unknown]
  - Influenza [Unknown]
  - Muscle spasms [Unknown]
  - Pain in extremity [Unknown]
